FAERS Safety Report 7823239-1 (Version None)
Quarter: 2011Q4

REPORT INFORMATION
  Report Type: 
  Country: None (occurrence: None)
  Receive Date: 20111019
  Receipt Date: 20111006
  Transmission Date: 20120403
  Serious: Yes (Other)
  Sender: FDA-Public Use
  Company Number: AU-AMGEN-AUSSP2011046043

PATIENT
  Age: 63 Year
  Sex: Male

DRUGS (4)
  1. ENBREL [Suspect]
     Indication: PSORIASIS
     Dosage: 50 MG, WEEKLY
     Dates: start: 20110601
  2. CARTIA                             /00002701/ [Concomitant]
     Dosage: UNK
  3. MICARDIS [Concomitant]
     Dosage: 40 MG, 1X/DAY
  4. METOPROLOL TARTRATE [Concomitant]
     Dosage: 25 MG, 2X/DAY

REACTIONS (4)
  - FATIGUE [None]
  - HEART RATE INCREASED [None]
  - CONFUSIONAL STATE [None]
  - EYE PAIN [None]
